FAERS Safety Report 4704983-1 (Version None)
Quarter: 2005Q2

REPORT INFORMATION
  Report Type: 
  Country: None (occurrence: None)
  Receive Date: 20050629
  Receipt Date: 20050629
  Transmission Date: 20051028
  Serious: Yes (Death)
  Sender: FDA-Public Use
  Company Number: None

PATIENT
  Age: 55 Year
  Sex: Male

DRUGS (1)
  1. FENTANYL [Suspect]
     Indication: PAIN MANAGEMENT
     Dosage: PATCH, 50 MCG, 25 MCG TRANSDERMAL
     Route: 062
     Dates: start: 20050429

REACTIONS (6)
  - CARDIAC ARREST [None]
  - CARDIOMEGALY [None]
  - DRUG TOXICITY [None]
  - LETHARGY [None]
  - PHARMACEUTICAL PRODUCT COMPLAINT [None]
  - STUPOR [None]
